FAERS Safety Report 11700390 (Version 1)
Quarter: 2015Q4

REPORT INFORMATION
  Report Type: Spontaneous
  Country: US (occurrence: None)
  Receive Date: 20151104
  Receipt Date: 20151104
  Transmission Date: 20160304
  Serious: Yes (Other)
  Sender: FDA-Public Use
  Company Number: None

PATIENT
  Age: 78 Year
  Sex: Female
  Weight: 119.75 kg

DRUGS (21)
  1. CITALOPRAM TABLET [Suspect]
     Active Substance: CITALOPRAM HYDROBROMIDE
     Indication: STRESS
     Route: 048
     Dates: start: 20150116, end: 20151007
  2. VERAPAMIL [Concomitant]
     Active Substance: VERAPAMIL HYDROCHLORIDE
  3. BRIMONIDINE OPTHMALOG [Concomitant]
  4. OCUVITE [Concomitant]
     Active Substance: VITAMINS
  5. CITALOPRAM TABLET [Suspect]
     Active Substance: CITALOPRAM HYDROBROMIDE
     Indication: HEADACHE
     Route: 048
     Dates: start: 20150116, end: 20151007
  6. CITALOPRAM TABLET [Suspect]
     Active Substance: CITALOPRAM HYDROBROMIDE
     Indication: SLEEP DISORDER
     Route: 048
     Dates: start: 20150116, end: 20151007
  7. DIGESTIVE PEARLS [Concomitant]
  8. LATANAPROST OPTHMALOG [Concomitant]
  9. FLEXERIL [Concomitant]
     Active Substance: CYCLOBENZAPRINE HYDROCHLORIDE
  10. COQ10 [Concomitant]
     Active Substance: UBIDECARENONE
  11. CPAP MACHINE. [Concomitant]
  12. PRADAXA [Concomitant]
     Active Substance: DABIGATRAN ETEXILATE MESYLATE
  13. ROPINEROLE [Concomitant]
     Active Substance: ROPINIROLE
  14. DORZOL/TIMOLOL OPTHMALOG [Concomitant]
  15. JENTADUETO [Concomitant]
     Active Substance: LINAGLIPTIN\METFORMIN HYDROCHLORIDE
  16. DIOVAN HCT [Concomitant]
     Active Substance: HYDROCHLOROTHIAZIDE\VALSARTAN
  17. VIT. B-12 [Concomitant]
  18. METRONIDAZOLE. [Concomitant]
     Active Substance: METRONIDAZOLE
  19. TURMERIC [Concomitant]
     Active Substance: TURMERIC
  20. VID. D3 [Concomitant]
  21. RED YEAST RICE [Concomitant]
     Active Substance: DIETARY SUPPLEMENT

REACTIONS (3)
  - Anxiety [None]
  - Hallucination, visual [None]
  - Insomnia [None]

NARRATIVE: CASE EVENT DATE: 20151007
